FAERS Safety Report 17532240 (Version 2)
Quarter: 2020Q2

REPORT INFORMATION
  Report Type: Report from Study
  Country: None (occurrence: US)
  Receive Date: 20200311
  Receipt Date: 20200404
  Transmission Date: 20200713
  Serious: Yes (Hospitalization, Other)
  Sender: FDA-Public Use
  Company Number: US-ABBVIE-20K-163-3310233-00

PATIENT
  Sex: Female

DRUGS (2)
  1. CREON [Suspect]
     Active Substance: PANCRELIPASE AMYLASE\PANCRELIPASE LIPASE\PANCRELIPASE PROTEASE
     Route: 048
  2. CREON [Suspect]
     Active Substance: PANCRELIPASE AMYLASE\PANCRELIPASE LIPASE\PANCRELIPASE PROTEASE
     Indication: PANCREATIC CARCINOMA
     Route: 048

REACTIONS (8)
  - Oedema [Recovering/Resolving]
  - Hypophagia [Recovering/Resolving]
  - Malnutrition [Recovering/Resolving]
  - Parenteral nutrition [Not Recovered/Not Resolved]
  - Weight decreased [Recovering/Resolving]
  - Mobility decreased [Not Recovered/Not Resolved]
  - Gastric disorder [Recovering/Resolving]
  - Pancreatic carcinoma [Not Recovered/Not Resolved]

NARRATIVE: CASE EVENT DATE: 2017
